FAERS Safety Report 5151109-9 (Version None)
Quarter: 2006Q4

REPORT INFORMATION
  Report Type: 
  Country: None (occurrence: None)
  Receive Date: 20061115
  Receipt Date: 20060929
  Transmission Date: 20070319
  Serious: Yes (Hospitalization)
  Sender: FDA-Public Use
  Company Number: DK-BAYER-200614465GDS

PATIENT
  Age: 65 Year
  Sex: Male
  Weight: 66 kg

DRUGS (34)
  1. SORAFENIB [Suspect]
     Indication: RENAL CELL CARCINOMA STAGE UNSPECIFIED
     Dosage: TOTAL DAILY DOSE: 800 MG
     Route: 048
     Dates: start: 20060403, end: 20060602
  2. SORAFENIB [Suspect]
     Dosage: TOTAL DAILY DOSE: 400 MG
     Route: 048
     Dates: start: 20060602, end: 20060724
  3. SORAFENIB [Suspect]
     Dosage: TOTAL DAILY DOSE: 800 MG
     Route: 048
     Dates: start: 20060724, end: 20060821
  4. SORAFENIB [Suspect]
     Dosage: TOTAL DAILY DOSE: 400 MG
     Route: 048
     Dates: start: 20060821, end: 20061107
  5. KALEORID [Concomitant]
     Indication: HYPOKALAEMIA
     Route: 065
     Dates: start: 20060101
  6. KALEORID [Concomitant]
     Route: 065
     Dates: start: 20060301, end: 20060101
  7. EMPERAL [Concomitant]
     Indication: NAUSEA
     Route: 065
     Dates: start: 20060301
  8. FURIX [Concomitant]
     Indication: HYPERTENSION
     Route: 065
     Dates: start: 20060101
  9. FURIX [Concomitant]
     Route: 065
     Dates: start: 20060301, end: 20060101
  10. MAGNYL [Concomitant]
     Indication: ISCHAEMIC HEART DISEASE PROPHYLAXIS
     Route: 065
     Dates: start: 20060101
  11. MAGNYL [Concomitant]
     Route: 065
     Dates: start: 20060529, end: 20060529
  12. MAGNYL [Concomitant]
     Route: 065
     Dates: start: 19900101, end: 20060426
  13. AMLODIPINE [Concomitant]
     Indication: HYPERTENSION
     Route: 065
     Dates: start: 20060301, end: 20060502
  14. MORFIN [Concomitant]
     Indication: PAIN
     Route: 065
     Dates: start: 20060101
  15. MORFIN [Concomitant]
     Route: 065
     Dates: start: 20060601, end: 20060101
  16. IDOTYL [Concomitant]
     Indication: ACUTE MYOCARDIAL INFARCTION
     Route: 065
     Dates: start: 20060501, end: 20060501
  17. PLAVIX [Concomitant]
     Indication: ACUTE MYOCARDIAL INFARCTION
     Route: 065
     Dates: start: 20060501, end: 20060523
  18. CLEXANE [Concomitant]
     Indication: ACUTE MYOCARDIAL INFARCTION
     Route: 065
     Dates: start: 20060501, end: 20060501
  19. SELOZOK [Concomitant]
     Indication: ACUTE MYOCARDIAL INFARCTION
     Route: 065
     Dates: start: 20060502
  20. CYCLOCAPRON [Concomitant]
     Indication: HAEMOPTYSIS
     Route: 065
     Dates: start: 20060521, end: 20060501
  21. CYCLOCAPRON [Concomitant]
     Route: 065
     Dates: start: 20060501
  22. NITROMEX [Concomitant]
     Indication: CHEST PAIN
     Route: 065
     Dates: start: 20060501
  23. CORDARONE [Concomitant]
     Indication: ACUTE MYOCARDIAL INFARCTION
     Route: 065
     Dates: start: 20060616
  24. CORDARONE [Concomitant]
     Route: 065
     Dates: start: 20060531, end: 20060601
  25. CORDARONE [Concomitant]
     Route: 065
     Dates: start: 20060602, end: 20060608
  26. CORDARONE [Concomitant]
     Route: 065
     Dates: start: 20060609, end: 20060615
  27. DUOVENT [Concomitant]
     Indication: DYSPNOEA
     Route: 065
     Dates: start: 20060524, end: 20060101
  28. MUCOMYST [Concomitant]
     Indication: DYSPNOEA
     Route: 065
     Dates: start: 20060701
  29. PREDNISOLON [Concomitant]
     Indication: DYSPNOEA
     Route: 065
     Dates: start: 20060701
  30. VEPICOMBIN [Concomitant]
     Indication: UNEVALUABLE EVENT
     Route: 065
     Dates: start: 20060710, end: 20060717
  31. BRICANYL [Concomitant]
     Indication: DYSPNOEA
     Route: 065
     Dates: start: 20060711
  32. ATROVENT [Concomitant]
     Indication: DYSPNOEA
     Route: 065
     Dates: start: 20060711
  33. PROCTOSEDYL [Concomitant]
     Indication: CONSTIPATION
     Route: 065
     Dates: start: 20060101
  34. IMOZOP [Concomitant]
     Indication: INSOMNIA
     Route: 065
     Dates: start: 20060101

REACTIONS (8)
  - ANGINA PECTORIS [None]
  - ATRIAL FIBRILLATION [None]
  - BRONCHIAL FISTULA [None]
  - IMPAIRED HEALING [None]
  - MYOCARDIAL INFARCTION [None]
  - MYOCARDIAL ISCHAEMIA [None]
  - PNEUMOTHORAX [None]
  - POST PROCEDURAL FISTULA [None]
